FAERS Safety Report 5612151-4 (Version None)
Quarter: 2008Q1

REPORT INFORMATION
  Report Type: 
  Country: None (occurrence: None)
  Receive Date: 20080204
  Receipt Date: 20080121
  Transmission Date: 20080703
  Serious: Yes (Other)
  Sender: FDA-Public Use
  Company Number: US-AMGEN-QUU260349

PATIENT
  Age: 75 Year
  Sex: Female
  Weight: 101.2 kg

DRUGS (9)
  1. ARANESP [Suspect]
     Indication: RENAL FAILURE CHRONIC
     Route: 042
     Dates: start: 20070723, end: 20070723
  2. ALLOPURINOL [Suspect]
  3. COUMADIN [Concomitant]
  4. FISH OIL [Concomitant]
  5. COENZYME Q10 [Concomitant]
  6. TOPROL-XL [Concomitant]
  7. LOTENSIN [Concomitant]
  8. LIPITOR [Concomitant]
  9. VITAMIN CAP [Concomitant]

REACTIONS (8)
  - ALOPECIA [None]
  - DECREASED APPETITE [None]
  - HAIR COLOUR CHANGES [None]
  - HYPERSENSITIVITY [None]
  - HYPERSOMNIA [None]
  - MALAISE [None]
  - NAUSEA [None]
  - RASH [None]
